FAERS Safety Report 12844843 (Version 2)
Quarter: 2017Q1

REPORT INFORMATION
  Report Type: Spontaneous
  Country: US (occurrence: US)
  Receive Date: 20161013
  Receipt Date: 20170215
  Transmission Date: 20170428
  Serious: Yes (Hospitalization)
  Sender: FDA-Public Use
  Company Number: US-SAOL THERAPEUTICS-2016SAO00370

PATIENT
  Age: 60 Year
  Sex: Male
  Weight: 63.39 kg

DRUGS (19)
  1. BACLOFEN. [Suspect]
     Active Substance: BACLOFEN
     Indication: MULTIPLE SCLEROSIS
     Dosage: 35 ?G, \DAY
     Route: 037
  2. VIBRAMYCIN [Concomitant]
     Active Substance: DOXYCYCLINE
     Dosage: 100 MG, 2X/DAY
     Route: 048
  3. LIORESAL [Concomitant]
     Active Substance: BACLOFEN
     Dosage: 10 MG, 3X/DAY
     Route: 048
  4. CALCIUM CARBONATE. [Concomitant]
     Active Substance: CALCIUM CARBONATE
     Dosage: 1000 MG, 1X/DAY
     Route: 048
  5. TYSABRI [Concomitant]
     Active Substance: NATALIZUMAB
     Dosage: UNKNOWN
     Route: 042
  6. LIPITOR [Concomitant]
     Active Substance: ATORVASTATIN CALCIUM
     Dosage: 80 MG, UNK
     Route: 048
  7. CALCITRATE [Concomitant]
     Active Substance: CALCIUM CITRATE
     Dosage: 2 TABLETS, \DAY
  8. CHOLECALCIFEROL; VITAMIN D [Concomitant]
     Dosage: UNK
     Route: 048
  9. IMODIUM [Concomitant]
     Active Substance: LOPERAMIDE HYDROCHLORIDE
     Dosage: 2 MG, AS NEEDED
     Route: 048
  10. BRILINTA [Concomitant]
     Active Substance: TICAGRELOR
     Dosage: 90 MG, UNK
     Route: 048
  11. BACLOFEN. [Suspect]
     Active Substance: BACLOFEN
     Indication: MUSCLE SPASTICITY
     Route: 037
  12. ASPIRIN. [Concomitant]
     Active Substance: ASPIRIN
     Dosage: 81 MG, UNK
     Route: 048
  13. KLONOPIN [Concomitant]
     Active Substance: CLONAZEPAM
     Dosage: 1 MG, 1X/DAY
     Route: 048
  14. PRIVINIL [Concomitant]
     Dosage: 10 MG, UNK
     Route: 048
  15. BACLOFEN. [Suspect]
     Active Substance: BACLOFEN
     Indication: MUSCLE SPASTICITY
     Dosage: 62.4 ?G, \DAY
     Route: 037
  16. BACLOFEN. [Suspect]
     Active Substance: BACLOFEN
     Indication: MULTIPLE SCLEROSIS
  17. ASCORBIC ACID (VITAMIN C) [Concomitant]
     Active Substance: ASCORBIC ACID
     Dosage: 500 MG, UNK
     Route: 048
  18. PROZAC [Concomitant]
     Active Substance: FLUOXETINE HYDROCHLORIDE
     Dosage: 40 MG 1X DAY
     Route: 048
  19. THERAGRAN MULTIVITAMIN [Concomitant]
     Route: 048

REACTIONS (20)
  - Implant site cellulitis [Recovered/Resolved]
  - Nausea [Unknown]
  - Nervousness [Unknown]
  - Muscle spasticity [Unknown]
  - Hypoaesthesia [Unknown]
  - Hypotonia [Unknown]
  - Peripheral swelling [Unknown]
  - Neck pain [Unknown]
  - Wound infection staphylococcal [Recovered/Resolved]
  - Asthenia [Unknown]
  - Muscle contracture [Unknown]
  - Dysphoria [Unknown]
  - Dysstasia [Unknown]
  - Fatigue [Unknown]
  - Joint range of motion decreased [Unknown]
  - Back pain [Unknown]
  - Implant site abscess [Recovered/Resolved]
  - Dyspnoea [Unknown]
  - Arthralgia [Unknown]
  - Myalgia [Unknown]

NARRATIVE: CASE EVENT DATE: 201604
